FAERS Safety Report 4716324-4 (Version None)
Quarter: 2005Q3

REPORT INFORMATION
  Report Type: 
  Country: None (occurrence: None)
  Receive Date: 20050711
  Receipt Date: 20040513
  Transmission Date: 20060218
  Serious: Yes (Hospitalization)
  Sender: FDA-Public Use
  Company Number: 367876

PATIENT
  Age: 74 Year
  Sex: Male
  Weight: 98.4 kg

DRUGS (3)
  1. CELLCEPT [Suspect]
     Indication: INTERSTITIAL LUNG DISEASE
     Dosage: ORAL
     Route: 048
     Dates: end: 20040510
  2. AZATHIOPRINE [Concomitant]
  3. PREDNISONE [Concomitant]

REACTIONS (5)
  - ATRIAL FIBRILLATION [None]
  - CHEST PAIN [None]
  - PERICARDIAL EFFUSION [None]
  - PERICARDIAL HAEMORRHAGE [None]
  - SYNCOPE [None]
